FAERS Safety Report 25762117 (Version 1)
Quarter: 2025Q3

REPORT INFORMATION
  Report Type: Spontaneous
  Country: US (occurrence: US)
  Receive Date: 20250904
  Receipt Date: 20250904
  Transmission Date: 20251021
  Serious: No
  Sender: ARS PHARMACEUTICALS OPERATIONS, INC.
  Company Number: US-ARS PHARMACEUTICALS OPERATIONS, INC.-2025ARP00056

PATIENT
  Sex: Female
  Weight: 56.689 kg

DRUGS (7)
  1. NEFFY [Suspect]
     Active Substance: EPINEPHRINE
     Indication: Anaphylactic reaction
     Route: 045
     Dates: start: 20250409, end: 20250409
  2. NEFFY [Suspect]
     Active Substance: EPINEPHRINE
     Indication: Food allergy
  3. YAZ [DROSPIRENONE;ETHINYLESTRADIOL BETADEX CLATHRATE] [Concomitant]
  4. PROZAC [Concomitant]
     Active Substance: FLUOXETINE HYDROCHLORIDE
  5. ENBREL [Concomitant]
     Active Substance: ETANERCEPT
     Dosage: UNK, 1X/WEEK
  6. XOLAIR [Concomitant]
     Active Substance: OMALIZUMAB
     Dosage: 300 MG, 1X/MONTH
  7. ZYRTEC [Concomitant]
     Active Substance: CETIRIZINE HYDROCHLORIDE

REACTIONS (9)
  - Staphylococcal infection [Recovered/Resolved]
  - Eye irritation [Recovered/Resolved]
  - Oxygen saturation decreased [Unknown]
  - Swelling of nose [Recovered/Resolved]
  - Nasal discomfort [Recovered/Resolved]
  - Rhinalgia [Recovered/Resolved]
  - Rhinorrhoea [Recovered/Resolved]
  - Blood pressure increased [Unknown]
  - Heart rate increased [Unknown]

NARRATIVE: CASE EVENT DATE: 20250101
